FAERS Safety Report 13928824 (Version 1)
Quarter: 2017Q3

REPORT INFORMATION
  Report Type: Spontaneous
  Country: CN (occurrence: CN)
  Receive Date: 20170901
  Receipt Date: 20170901
  Transmission Date: 20171127
  Serious: Yes (Death, Life-Threatening, Hospitalization, Other)
  Sender: FDA-Public Use
  Company Number: CN-CONCORDIA PHARMACEUTICALS INC.-GSH201708-004874

PATIENT
  Age: 24 Year
  Sex: Male

DRUGS (18)
  1. THALIDOMIDE [Concomitant]
     Active Substance: THALIDOMIDE
  2. METHYLPREDNISOLONE. [Suspect]
     Active Substance: METHYLPREDNISOLONE
     Route: 048
  3. METHYLPREDNISOLONE. [Suspect]
     Active Substance: METHYLPREDNISOLONE
     Route: 048
  4. METHYLPREDNISOLONE. [Suspect]
     Active Substance: METHYLPREDNISOLONE
     Route: 048
  5. LEVOFLOXACIN. [Suspect]
     Active Substance: LEVOFLOXACIN
     Indication: BRAIN ABSCESS
     Route: 065
  6. MEROPENEM. [Suspect]
     Active Substance: MEROPENEM
     Indication: BRAIN ABSCESS
     Route: 065
  7. CEFTRIAXONE. [Suspect]
     Active Substance: CEFTRIAXONE
     Indication: BRAIN ABSCESS
     Route: 065
  8. HYDROXYCHLOROQUINE [Suspect]
     Active Substance: HYDROXYCHLOROQUINE
     Indication: TYPE 2 LEPRA REACTION
     Route: 065
  9. METHYLPREDNISOLONE. [Suspect]
     Active Substance: METHYLPREDNISOLONE
     Indication: TYPE 2 LEPRA REACTION
     Route: 048
     Dates: start: 2013
  10. DAPSONE. [Concomitant]
     Active Substance: DAPSONE
  11. METHYLPREDNISOLONE. [Suspect]
     Active Substance: METHYLPREDNISOLONE
     Route: 048
  12. LEFLUNOMIDE. [Suspect]
     Active Substance: LEFLUNOMIDE
     Indication: TYPE 2 LEPRA REACTION
     Route: 065
  13. CLOFAZIMINE [Concomitant]
     Active Substance: CLOFAZIMINE
  14. METHYLPREDNISOLONE. [Suspect]
     Active Substance: METHYLPREDNISOLONE
     Route: 048
  15. CYCLOPHOSPHAMIDE. [Suspect]
     Active Substance: CYCLOPHOSPHAMIDE
     Indication: TYPE 2 LEPRA REACTION
     Route: 065
  16. METHYLPREDNISOLONE. [Suspect]
     Active Substance: METHYLPREDNISOLONE
     Route: 048
  17. METHYLPREDNISOLONE. [Suspect]
     Active Substance: METHYLPREDNISOLONE
     Route: 048
  18. RIFAMPIN. [Concomitant]
     Active Substance: RIFAMPIN

REACTIONS (13)
  - CSF white blood cell count increased [Unknown]
  - Type 2 lepra reaction [Fatal]
  - Drug ineffective [Unknown]
  - Drug dependence [Fatal]
  - Brain abscess [Fatal]
  - Musculoskeletal stiffness [Unknown]
  - Off label use [Unknown]
  - Headache [Unknown]
  - Vomiting projectile [Unknown]
  - Pseudomonas infection [Unknown]
  - Therapeutic response decreased [Unknown]
  - Pyrexia [Unknown]
  - Coma [Unknown]
